FAERS Safety Report 7374067-5 (Version None)
Quarter: 2011Q1

REPORT INFORMATION
  Report Type: 
  Country: None (occurrence: None)
  Receive Date: 20110325
  Receipt Date: 20110316
  Transmission Date: 20110831
  Serious: Yes (Death, Other)
  Sender: FDA-Public Use
  Company Number: JP-ASTELLAS-2011JP001846

PATIENT
  Age: 55 Year
  Sex: Male

DRUGS (9)
  1. FLUDARABINE [Concomitant]
     Dosage: UNK
     Route: 065
  2. VORICONAZOLE [Concomitant]
     Indication: ASPERGILLOSIS
     Route: 065
  3. FUNGUARD [Concomitant]
     Route: 065
  4. RITUXIMAB [Concomitant]
     Indication: DIFFUSE LARGE B-CELL LYMPHOMA
     Route: 065
  5. PROGRAF [Suspect]
     Indication: PROPHYLAXIS AGAINST GRAFT VERSUS HOST DISEASE
     Route: 065
  6. METHOTREXATE [Concomitant]
     Indication: PROPHYLAXIS AGAINST GRAFT VERSUS HOST DISEASE
     Route: 065
  7. RITUXIMAB [Concomitant]
     Route: 065
  8. AMPHOTERICIN B [Concomitant]
     Route: 065
  9. MELPHALAN [Concomitant]
     Route: 065

REACTIONS (3)
  - ASPERGILLOSIS [None]
  - CYTOMEGALOVIRUS GASTROENTERITIS [None]
  - DIFFUSE LARGE B-CELL LYMPHOMA [None]
